FAERS Safety Report 10070003 (Version 3)
Quarter: 2014Q2

REPORT INFORMATION
  Report Type: Spontaneous
  Country: IT (occurrence: None)
  Receive Date: 20140408
  Receipt Date: 20140520
  Transmission Date: 20141212
  Serious: Yes (Hospitalization)
  Sender: FDA-Public Use
  Company Number: AUR-APL-2014-04089

PATIENT
  Age: 75 Year
  Sex: Male

DRUGS (1)
  1. METFORMIN [Suspect]
     Indication: TYPE 2 DIABETES MELLITUS
     Dosage: (1 GM, 1 D), ORAL
     Route: 048
     Dates: start: 20081030, end: 20131030

REACTIONS (5)
  - Anuria [None]
  - Metabolic acidosis [None]
  - Renal failure acute [None]
  - Dialysis [None]
  - Drug level increased [None]
